FAERS Safety Report 6631791-7 (Version None)
Quarter: 2010Q1

REPORT INFORMATION
  Report Type: 
  Country: None (occurrence: None)
  Receive Date: 20100312
  Receipt Date: 20100308
  Transmission Date: 20100710
  Serious: Yes (Other)
  Sender: FDA-Public Use
  Company Number: JP-BAYER-200913542BYL

PATIENT
  Age: 60 Year
  Sex: Male
  Weight: 63 kg

DRUGS (7)
  1. NEXAVAR [Suspect]
     Indication: HEPATIC NEOPLASM MALIGNANT
     Dosage: TOTAL DAILY DOSE: 800 MG  UNIT DOSE: 200 MG
     Route: 048
     Dates: start: 20090916, end: 20091111
  2. NEXAVAR [Suspect]
     Dosage: TOTAL DAILY DOSE: 400 MG  UNIT DOSE: 200 MG
     Route: 048
     Dates: start: 20091209, end: 20091228
  3. NEXAVAR [Suspect]
     Dosage: TOTAL DAILY DOSE: 400 MG  UNIT DOSE: 200 MG
     Route: 048
     Dates: start: 20100227
  4. AMLODIPINE [Concomitant]
     Indication: HYPERTENSION
     Dosage: UNIT DOSE: 5 MG
     Route: 048
     Dates: start: 20090916
  5. PARIET [Concomitant]
     Indication: REFLUX OESOPHAGITIS
     Dosage: UNIT DOSE: 10 MG
     Route: 048
     Dates: start: 20090916
  6. GASTEEL [Concomitant]
     Indication: ABDOMINAL PAIN
     Dosage: UNIT DOSE: 40 MG
     Route: 048
     Dates: start: 20090916
  7. URSO 250 [Concomitant]
     Indication: PROPHYLAXIS
     Dosage: UNIT DOSE: 100 MG
     Route: 048
     Dates: start: 20090916

REACTIONS (4)
  - ALOPECIA [None]
  - HEPATIC FUNCTION ABNORMAL [None]
  - HYPERTENSION [None]
  - PALMAR-PLANTAR ERYTHRODYSAESTHESIA SYNDROME [None]
